FAERS Safety Report 4816728-5 (Version None)
Quarter: 2005Q4

REPORT INFORMATION
  Report Type: 
  Country: None (occurrence: None)
  Receive Date: 20051028
  Receipt Date: 20051012
  Transmission Date: 20060501
  Serious: No
  Sender: FDA-Public Use
  Company Number: 2005IP000214

PATIENT
  Age: 21 Year
  Sex: Female

DRUGS (8)
  1. XIBROM [Suspect]
     Dosage: 1 GTT;BID; OPH
     Route: 047
     Dates: start: 20050825, end: 20050908
  2. SYSTANE LUBRICANTING [Concomitant]
  3. EYDROPS [Concomitant]
  4. CARBAMAZEPINE [Concomitant]
  5. FAMOTIDINE [Concomitant]
  6. FERROUS SULFATE TAB [Concomitant]
  7. MOXIFLOXACIN [Concomitant]
  8. LAMOTRIGINE [Concomitant]

REACTIONS (3)
  - CORNEAL PERFORATION [None]
  - CORNEAL TRANSPLANT [None]
  - ULCERATIVE KERATITIS [None]
